FAERS Safety Report 8901872 (Version 1)
Quarter: 2012Q4

REPORT INFORMATION
  Report Type: Spontaneous
  Country: US (occurrence: None)
  Receive Date: 20121109
  Receipt Date: 20121109
  Transmission Date: 20130627
  Serious: Yes (Other)
  Sender: FDA-Public Use
  Company Number: None

PATIENT
  Age: 59 Year
  Sex: Female
  Weight: 73.94 kg

DRUGS (1)
  1. ZOLOFT [Suspect]
     Dates: start: 20121004

REACTIONS (1)
  - Heart rate decreased [None]
